FAERS Safety Report 7628500-1 (Version None)
Quarter: 2011Q3

REPORT INFORMATION
  Report Type: 
  Country: None (occurrence: None)
  Receive Date: 20110722
  Receipt Date: 20110711
  Transmission Date: 20111222
  Serious: Yes (Other)
  Sender: FDA-Public Use
  Company Number: US-UCBSA-037014

PATIENT
  Age: 35 Year
  Sex: Female

DRUGS (1)
  1. VIMPAT [Suspect]
     Dosage: 200 MG EVERY MORNING AND 300 MG EVERY NIGHT

REACTIONS (2)
  - CONVULSION [None]
  - BRAIN NEOPLASM [None]
